FAERS Safety Report 24447025 (Version 1)
Quarter: 2024Q4

REPORT INFORMATION
  Report Type: Spontaneous
  Country: US (occurrence: US)
  Receive Date: 20241016
  Receipt Date: 20241016
  Transmission Date: 20250115
  Serious: No
  Sender: MERCK
  Company Number: US-009507513-2410USA003676

PATIENT
  Sex: Male

DRUGS (1)
  1. WELIREG [Suspect]
     Active Substance: BELZUTIFAN
     Indication: Metastases to central nervous system
     Dosage: 120 MILLIGRAM, ONCE DAILY
     Route: 048

REACTIONS (1)
  - Full blood count decreased [Not Recovered/Not Resolved]
